FAERS Safety Report 21259156 (Version 1)
Quarter: 2022Q3

REPORT INFORMATION
  Report Type: Spontaneous
  Country: FR (occurrence: FR)
  Receive Date: 20220826
  Receipt Date: 20220826
  Transmission Date: 20221027
  Serious: Yes (Other)
  Sender: FDA-Public Use
  Company Number: None

PATIENT

DRUGS (18)
  1. LAMICTAL [Suspect]
     Active Substance: LAMOTRIGINE
     Indication: Idiopathic generalised epilepsy
     Dosage: 25 MG, QOD
     Route: 048
     Dates: start: 20210407, end: 20210421
  2. LAMICTAL [Suspect]
     Active Substance: LAMOTRIGINE
     Dosage: 25 MG, QD
     Route: 048
     Dates: start: 20210421, end: 20210519
  3. LAMICTAL [Suspect]
     Active Substance: LAMOTRIGINE
     Dosage: 200 MG, QD
     Route: 048
     Dates: start: 20210519, end: 20210901
  4. LAMICTAL [Suspect]
     Active Substance: LAMOTRIGINE
     Dosage: 250 MG, QD
     Route: 048
     Dates: start: 20210901, end: 20211208
  5. LAMICTAL [Suspect]
     Active Substance: LAMOTRIGINE
     Dosage: 425 MG, QD
     Route: 048
     Dates: start: 20211208, end: 20211222
  6. LAMICTAL [Suspect]
     Active Substance: LAMOTRIGINE
     Dosage: 450 MG, QD
     Route: 048
     Dates: start: 20211222, end: 2022
  7. LAMICTAL [Suspect]
     Active Substance: LAMOTRIGINE
     Dosage: 500 MG, QD
     Route: 048
     Dates: start: 2022, end: 20220309
  8. LAMICTAL [Suspect]
     Active Substance: LAMOTRIGINE
     Dosage: 650 MG, QD
     Route: 048
     Dates: start: 20220309, end: 20220412
  9. LAMICTAL [Suspect]
     Active Substance: LAMOTRIGINE
     Dosage: 600 MG, QD
     Route: 048
     Dates: start: 20220412, end: 20220415
  10. LAMICTAL [Suspect]
     Active Substance: LAMOTRIGINE
     Dosage: 500 MG, QD
     Route: 048
     Dates: start: 20220415, end: 20220418
  11. LAMICTAL [Suspect]
     Active Substance: LAMOTRIGINE
     Dosage: 400 MG, QD
     Route: 048
     Dates: start: 20220418, end: 20220421
  12. LAMICTAL [Suspect]
     Active Substance: LAMOTRIGINE
     Dosage: 350 MG, QD
     Route: 048
     Dates: start: 20220421, end: 20220424
  13. LAMICTAL [Suspect]
     Active Substance: LAMOTRIGINE
     Dosage: 300 MG, QD
     Route: 048
     Dates: start: 20220424, end: 20220427
  14. LAMICTAL [Suspect]
     Active Substance: LAMOTRIGINE
     Dosage: 250 MG, QD
     Route: 048
     Dates: start: 20220427, end: 20220430
  15. LAMICTAL [Suspect]
     Active Substance: LAMOTRIGINE
     Dosage: 200 MG, QD
     Route: 048
     Dates: start: 20220430, end: 20220503
  16. LAMICTAL [Suspect]
     Active Substance: LAMOTRIGINE
     Dosage: 150 MG, QD
     Route: 048
     Dates: start: 20220503, end: 20220506
  17. LAMICTAL [Suspect]
     Active Substance: LAMOTRIGINE
     Dosage: 100 MG, QD
     Route: 048
     Dates: start: 20220506, end: 20220509
  18. LAMICTAL [Suspect]
     Active Substance: LAMOTRIGINE
     Dosage: 50 MG, QD
     Route: 048
     Dates: start: 20220509, end: 20220512

REACTIONS (2)
  - Cholestasis of pregnancy [Not Recovered/Not Resolved]
  - Exposure during pregnancy [Unknown]

NARRATIVE: CASE EVENT DATE: 20220325
